FAERS Safety Report 5816665-3 (Version None)
Quarter: 2008Q3

REPORT INFORMATION
  Report Type: 
  Country: None (occurrence: None)
  Receive Date: 20080721
  Receipt Date: 20080711
  Transmission Date: 20090109
  Serious: Yes (Hospitalization)
  Sender: FDA-Public Use
  Company Number: US-ABBOTT-05P-163-0301290-00

PATIENT
  Sex: Male
  Weight: 113.5 kg

DRUGS (3)
  1. DEPAKOTE ER [Suspect]
     Indication: CONVULSION
     Dosage: 1 IN AM, 2 AT BEDTIME
     Route: 048
     Dates: start: 20030101
  2. DEPAKOTE [Suspect]
     Indication: CONVULSION
     Route: 048
     Dates: end: 20041101
  3. AMOXICILLIN [Concomitant]
     Indication: PNEUMONIA
     Route: 048
     Dates: start: 20050401, end: 20050401

REACTIONS (6)
  - CONVULSION [None]
  - DRUG INEFFECTIVE [None]
  - FALL [None]
  - GRAND MAL CONVULSION [None]
  - PNEUMONIA [None]
  - ROTATOR CUFF SYNDROME [None]
